FAERS Safety Report 19086845 (Version 1)
Quarter: 2021Q2

REPORT INFORMATION
  Report Type: Spontaneous
  Country: SA (occurrence: SA)
  Receive Date: 20210402
  Receipt Date: 20210402
  Transmission Date: 20210717
  Serious: Yes (Other)
  Sender: FDA-Public Use
  Company Number: SA-RNT-000021

PATIENT
  Age: 76 Year
  Sex: Female

DRUGS (2)
  1. CANAGLIFLOZIN [Interacting]
     Active Substance: CANAGLIFLOZIN
     Indication: PRODUCT USED FOR UNKNOWN INDICATION
     Route: 065
  2. ROSUVASTATIN. [Suspect]
     Active Substance: ROSUVASTATIN
     Indication: PRODUCT USED FOR UNKNOWN INDICATION
     Route: 065

REACTIONS (6)
  - Drug interaction [Unknown]
  - Rhabdomyolysis [Recovered/Resolved]
  - Myopathy toxic [Unknown]
  - Drug level above therapeutic [Unknown]
  - Renal impairment [Recovering/Resolving]
  - Hepatocellular injury [Unknown]
